FAERS Safety Report 12194627 (Version 1)
Quarter: 2016Q1

REPORT INFORMATION
  Report Type: Spontaneous
  Country: US (occurrence: None)
  Receive Date: 20160318
  Receipt Date: 20160318
  Transmission Date: 20160526
  Serious: No
  Sender: FDA-Public Use
  Company Number: None

PATIENT
  Age: 67 Year
  Sex: Female

DRUGS (5)
  1. PIOGLITAZONE. [Concomitant]
     Active Substance: PIOGLITAZONE
  2. AFINITOR [Suspect]
     Active Substance: EVEROLIMUS
     Indication: RENAL CANCER
     Route: 048
     Dates: start: 20130809
  3. CARVEDILOL. [Concomitant]
     Active Substance: CARVEDILOL
  4. ATORVASTATIN [Concomitant]
     Active Substance: ATORVASTATIN
  5. LOSARTAN. [Concomitant]
     Active Substance: LOSARTAN

REACTIONS (4)
  - Epistaxis [None]
  - Dysgeusia [None]
  - Decreased appetite [None]
  - Weight decreased [None]
